FAERS Safety Report 15754818 (Version 1)
Quarter: 2018Q4

REPORT INFORMATION
  Report Type: Other
  Country: NL (occurrence: NL)
  Receive Date: 20181224
  Receipt Date: 20181224
  Transmission Date: 20190205
  Serious: Yes (Other)
  Sender: FDA-Public Use
  Company Number: NL-APOTEX-2018AP027624

PATIENT
  Age: 50 Year
  Sex: Male

DRUGS (7)
  1. LOSARTAN. [Concomitant]
     Active Substance: LOSARTAN
     Indication: PRODUCT USED FOR UNKNOWN INDICATION
     Dosage: 1 X DAAGS 1 TABLET ^S MORGENS
     Route: 065
     Dates: start: 20130802
  2. KALIUMLOSARTAN SANDOZ [Concomitant]
     Indication: PRODUCT USED FOR UNKNOWN INDICATION
     Dosage: 25 MG, QD
     Route: 065
  3. ALFACALCIDOL [Concomitant]
     Active Substance: ALFACALCIDOL
     Indication: PRODUCT USED FOR UNKNOWN INDICATION
     Dosage: 1 X DAAGS 1-2 CAPSULES
     Route: 065
     Dates: start: 20130610
  4. COLECALCIFEROL [Concomitant]
     Active Substance: CHOLECALCIFEROL
     Indication: PRODUCT USED FOR UNKNOWN INDICATION
     Route: 065
     Dates: start: 20180820
  5. COLECALCIFEROL [Concomitant]
     Active Substance: CHOLECALCIFEROL
     Indication: PRODUCT USED FOR UNKNOWN INDICATION
     Dosage: 1 X/ 2WEKEN 2 AMPULLEN VAN 1 ML
     Route: 065
     Dates: start: 20171018
  6. PRAVASTATIN. [Suspect]
     Active Substance: PRAVASTATIN
     Indication: CARDIOVASCULAR EVENT PROPHYLAXIS
     Dosage: 1X PER DAG 1 STUK
     Route: 065
     Dates: start: 20180806, end: 20180817
  7. TAMSULOSINE                        /01280301/ [Concomitant]
     Active Substance: TAMSULOSIN
     Indication: PRODUCT USED FOR UNKNOWN INDICATION
     Dosage: 1 X DAAGS 1 CAPSULE
     Route: 065
     Dates: start: 20171018

REACTIONS (2)
  - Myalgia [Unknown]
  - Loss of consciousness [Recovered/Resolved]

NARRATIVE: CASE EVENT DATE: 20180813
